FAERS Safety Report 5474369-3 (Version None)
Quarter: 2007Q4

REPORT INFORMATION
  Report Type: 
  Country: None (occurrence: None)
  Receive Date: 20071002
  Receipt Date: 20070925
  Transmission Date: 20080405
  Serious: Yes (Hospitalization)
  Sender: FDA-Public Use
  Company Number: PHEH2007US12943

PATIENT
  Sex: Female

DRUGS (2)
  1. DIOVAN [Suspect]
     Dosage: UNK, UNK
  2. PREMARIN [Suspect]
     Dosage: UNK, UNK

REACTIONS (4)
  - EMBOLISM [None]
  - HYPOTENSION [None]
  - OXYGEN SATURATION DECREASED [None]
  - PULMONARY EMBOLISM [None]
